FAERS Safety Report 9359986 (Version 1)
Quarter: 2013Q2

REPORT INFORMATION
  Report Type: Spontaneous
  Country: BR (occurrence: BR)
  Receive Date: 20130621
  Receipt Date: 20130621
  Transmission Date: 20140414
  Serious: Yes (Other)
  Sender: FDA-Public Use
  Company Number: BR-AMGEN-BRASP2013043414

PATIENT
  Age: 33 Year
  Sex: Male
  Weight: 79 kg

DRUGS (4)
  1. ENBREL [Suspect]
     Indication: ANKYLOSING SPONDYLITIS
     Dosage: UNK
     Route: 065
     Dates: start: 201011
  2. DICLOFENAC [Concomitant]
     Dosage: UNK
  3. VOLTAREN                           /00372302/ [Concomitant]
     Dosage: UNK
  4. CATAFLAM                           /00372302/ [Concomitant]
     Indication: PAIN
     Dosage: UNK UNK, AS NECESSARY

REACTIONS (7)
  - Hypotension [Recovering/Resolving]
  - Presyncope [Recovering/Resolving]
  - Yellow skin [Unknown]
  - Malnutrition [Unknown]
  - Intervertebral disc protrusion [Unknown]
  - Weight increased [Unknown]
  - Dysentery [Recovered/Resolved]
